FAERS Safety Report 20992860 (Version 2)
Quarter: 2022Q3

REPORT INFORMATION
  Report Type: Spontaneous
  Country: PL (occurrence: PL)
  Receive Date: 20220622
  Receipt Date: 20220704
  Transmission Date: 20221026
  Serious: Yes (Life-Threatening, Hospitalization)
  Sender: FDA-Public Use
  Company Number: PL-NOVARTISPH-NVSC2022PL142276

PATIENT
  Age: 65 Year
  Sex: Male

DRUGS (5)
  1. DULOXETINE [Interacting]
     Active Substance: DULOXETINE
     Indication: Diabetic neuropathy
     Dosage: 60 MG, Q24H
     Route: 065
  2. METOPROLOL [Interacting]
     Active Substance: METOPROLOL
     Indication: Sinus tachycardia
     Dosage: 100 MG, Q24H (ZOK (ZERO ORDER KINETIC), CONTROLLED RELEASE FORM)
     Route: 065
  3. THIOCTIC ACID MEGLUMINE [Concomitant]
     Indication: Diabetic neuropathy
     Dosage: 600 MG, Q24H
     Route: 065
  4. METFORMIN [Concomitant]
     Active Substance: METFORMIN HYDROCHLORIDE
     Indication: Type 2 diabetes mellitus
     Dosage: 2000 MG, Q24H
     Route: 065
  5. GLICLAZIDE [Concomitant]
     Active Substance: GLICLAZIDE
     Indication: Type 2 diabetes mellitus
     Dosage: 30 MG, Q24H (MODIFIED RELEASE DOSAGE FORM)
     Route: 065

REACTIONS (2)
  - Bradycardia [Unknown]
  - Drug interaction [Unknown]
